FAERS Safety Report 11588517 (Version 1)
Quarter: 2015Q4

REPORT INFORMATION
  Report Type: Spontaneous
  Country: AU (occurrence: AU)
  Receive Date: 20151002
  Receipt Date: 20151002
  Transmission Date: 20160304
  Serious: Yes (Other)
  Sender: FDA-Public Use
  Company Number: AU-ROCHE-1637133

PATIENT
  Sex: Male

DRUGS (3)
  1. PEGASYS [Suspect]
     Active Substance: PEGINTERFERON ALFA-2A
     Indication: HEPATITIS C
     Route: 065
     Dates: start: 201005
  2. RIBAVIRIN. [Suspect]
     Active Substance: RIBAVIRIN
     Indication: HEPATITIS C
     Route: 065
     Dates: start: 200901
  3. PEGATRON [Suspect]
     Active Substance: PEGINTERFERON ALFA-2B\RIBAVIRIN
     Indication: HEPATITIS C
     Route: 065
     Dates: start: 200901

REACTIONS (8)
  - Hepatitis C [Recovered/Resolved]
  - Peptic ulcer [Unknown]
  - Cataract [Unknown]
  - Arthritis [Unknown]
  - Hypoaesthesia [Unknown]
  - Ageusia [Unknown]
  - Mental disorder [Unknown]
  - Abdominal pain [Unknown]
